FAERS Safety Report 8184531-7 (Version None)
Quarter: 2012Q1

REPORT INFORMATION
  Report Type: 
  Country: None (occurrence: None)
  Receive Date: 20120210
  Receipt Date: 20110526
  Transmission Date: 20120608
  Serious: Yes (Other)
  Sender: FDA-Public Use
  Company Number: 2011BH017701

PATIENT
  Age: 13 Year
  Sex: Male

DRUGS (1)
  1. IFEX/MESNEX KIT [Suspect]
     Indication: LYMPHOMA
     Dosage: 1200 MG;UNK;IV
     Route: 042
     Dates: start: 20110525, end: 20110101

REACTIONS (1)
  - CONVULSION [None]
